FAERS Safety Report 9870433 (Version 1)
Quarter: 2014Q1

REPORT INFORMATION
  Report Type: Spontaneous
  Country: US (occurrence: None)
  Receive Date: 20140204
  Receipt Date: 20140204
  Transmission Date: 20141002
  Serious: Yes (Disabling)
  Sender: FDA-Public Use
  Company Number: None

PATIENT
  Age: 34 Year
  Sex: Female
  Weight: 50.8 kg

DRUGS (1)
  1. CIPROFLOXACIN 500 MG [Suspect]
     Indication: URINARY TRACT INFECTION
     Dosage: 1 PILL TWICE DAILY TAKEN BY MOUTH
     Route: 048
     Dates: start: 20130722, end: 20130727

REACTIONS (16)
  - Feeling jittery [None]
  - Insomnia [None]
  - Chest discomfort [None]
  - Suicidal ideation [None]
  - Pain in extremity [None]
  - Tremor [None]
  - Chills [None]
  - Nervousness [None]
  - Diarrhoea [None]
  - Dry mouth [None]
  - Hyperhidrosis [None]
  - Nausea [None]
  - Paraesthesia oral [None]
  - Formication [None]
  - Anxiety [None]
  - Burning sensation [None]
